FAERS Safety Report 7345054-8 (Version None)
Quarter: 2011Q1

REPORT INFORMATION
  Report Type: 
  Country: None (occurrence: None)
  Receive Date: 20110310
  Receipt Date: 20110228
  Transmission Date: 20110831
  Serious: Yes (Hospitalization, Other)
  Sender: FDA-Public Use
  Company Number: US-ELI_LILLY_AND_COMPANY-US201101006526

PATIENT
  Sex: Female
  Weight: 57.596 kg

DRUGS (13)
  1. ATENOLOL [Concomitant]
  2. ADVAIR DISKUS 100/50 [Concomitant]
  3. XANAX [Concomitant]
  4. PRAVACHOL [Concomitant]
  5. BENICAR [Concomitant]
  6. HUMULIN /PRI/ [Concomitant]
  7. CALCIUM [Concomitant]
  8. ASPIRIN [Concomitant]
  9. POTASSIUM [Concomitant]
  10. RESTASIS [Concomitant]
  11. VITAMIN D [Concomitant]
  12. FORTEO [Suspect]
     Indication: OSTEOPOROSIS
     Dosage: UNK, UNKNOWN
     Route: 065
     Dates: start: 20100327, end: 20101210
  13. HYDROCHLOROTHIAZIDE [Concomitant]

REACTIONS (2)
  - CORONARY ARTERY DISEASE [None]
  - BACK PAIN [None]
